FAERS Safety Report 24287805 (Version 2)
Quarter: 2024Q3

REPORT INFORMATION
  Report Type: Spontaneous
  Country: US (occurrence: US)
  Receive Date: 20240905
  Receipt Date: 20240909
  Transmission Date: 20241016
  Serious: No
  Sender: JOHNSON AND JOHNSON
  Company Number: US-VIIV HEALTHCARE LIMITED-US2024AMR108623

PATIENT
  Sex: Male

DRUGS (2)
  1. RILPIVIRINE [Suspect]
     Active Substance: RILPIVIRINE
     Indication: HIV infection
     Dosage: UNK UNK, MO (CABOTEGRAVIR 600 MG + RILPIVIRINE 900 MG(3ML) INTO THE MUSCLE MONTHLY FOR 2 MONTHS)
     Route: 030
  2. CABOTEGRAVIR [Suspect]
     Active Substance: CABOTEGRAVIR
     Indication: HIV infection
     Dosage: UNK UNK, MO (CABOTEGRAVIR 600 MG + RILPIVIRINE 900 MG(3ML) INTO THE MUSCLE MONTHLY FOR 2 MONTHS)
     Route: 030

REACTIONS (1)
  - Pain [Unknown]
